FAERS Safety Report 8850191 (Version 2)
Quarter: 2012Q4

REPORT INFORMATION
  Report Type: Report from Study
  Country: ES (occurrence: ES)
  Receive Date: 20121019
  Receipt Date: 20121101
  Transmission Date: 20130627
  Serious: Yes (Hospitalization, Other)
  Sender: FDA-Public Use
  Company Number: ES-TEVA-365117ISR

PATIENT
  Age: 47 Year
  Sex: Male
  Weight: 84 kg

DRUGS (7)
  1. TOCILIZUMAB [Suspect]
     Route: 042
     Dates: start: 20120307
  2. TOCILIZUMAB [Suspect]
     Route: 042
     Dates: start: 20120404
  3. TOCILIZUMAB [Suspect]
     Route: 042
     Dates: start: 20120502, end: 20120502
  4. DEFLAZACORT [Concomitant]
     Dosage: 12 Milligram Daily;
     Route: 048
     Dates: end: 20120703
  5. FENOFIBRAT [Concomitant]
     Dosage: 250 Milligram Daily;
     Route: 048
     Dates: end: 20120703
  6. FOLIC ACID [Concomitant]
     Dates: end: 20120703
  7. METHOTREXATE [Suspect]
     Indication: RHEUMATOID ARTHRITIS
     Route: 048

REACTIONS (1)
  - Hypertriglyceridaemia [Recovered/Resolved]
